FAERS Safety Report 7217858-3 (Version None)
Quarter: 2010Q4

REPORT INFORMATION
  Report Type: 
  Country: None (occurrence: None)
  Receive Date: 20101223
  Receipt Date: 20101213
  Transmission Date: 20110411
  Serious: Yes (Life-Threatening)
  Sender: FDA-Public Use
  Company Number: B0690223A

PATIENT
  Age: 18 Year
  Sex: Male

DRUGS (2)
  1. LAMIVUDINE [Suspect]
     Indication: HEPATITIS B
  2. PREDNISOLONE [Suspect]
     Indication: PRODUCT USED FOR UNKNOWN INDICATION

REACTIONS (18)
  - ACINETOBACTER INFECTION [None]
  - ANTI-HBC ANTIBODY POSITIVE [None]
  - ANTI-HBS ANTIBODY POSITIVE [None]
  - CYANOSIS [None]
  - DRUG INEFFECTIVE [None]
  - FATIGUE [None]
  - HEPATITIS B DNA ASSAY POSITIVE [None]
  - HEPATITIS B DNA INCREASED [None]
  - KLEBSIELLA INFECTION [None]
  - LEUKOCYTOCLASTIC VASCULITIS [None]
  - MALAISE [None]
  - MUSCLE NECROSIS [None]
  - PATHOGEN RESISTANCE [None]
  - POLYARTERITIS NODOSA [None]
  - SKIN NECROSIS [None]
  - STAPHYLOCOCCAL INFECTION [None]
  - SUPERINFECTION [None]
  - VASCULITIS NECROTISING [None]
